FAERS Safety Report 9833459 (Version 2)
Quarter: 2014Q1

REPORT INFORMATION
  Report Type: Report from Study
  Country: IT (occurrence: IT)
  Receive Date: 20140122
  Receipt Date: 20140122
  Transmission Date: 20141002
  Serious: Yes (Hospitalization)
  Sender: FDA-Public Use
  Company Number: IT-AMGEN-ITACT2013059543

PATIENT
  Age: 60 Year
  Sex: Male
  Weight: 66 kg

DRUGS (5)
  1. PANITUMUMAB [Suspect]
     Indication: ADENOCARCINOMA GASTRIC
     Dosage: 456 MG, Q2WK
     Route: 042
     Dates: start: 20121123
  2. TAXOTERE [Concomitant]
     Indication: ADENOCARCINOMA GASTRIC
     Dosage: 110 MG, Q2WK
     Route: 042
     Dates: start: 20121123, end: 20130104
  3. CISPLATINO [Concomitant]
     Indication: ADENOCARCINOMA GASTRIC
     Dosage: 37 MG, Q2WK
     Route: 042
     Dates: start: 20121123, end: 20130104
  4. 5 FLUOROURACIL [Concomitant]
     Indication: ADENOCARCINOMA GASTRIC
     Dosage: 1900 MG, Q2WK
     Route: 042
     Dates: start: 20121123, end: 20130106
  5. MAG 2 [Concomitant]
     Indication: HYPOMAGNESAEMIA
     Dosage: UNK
     Route: 048
     Dates: start: 20121125, end: 20130112

REACTIONS (3)
  - Asthenia [Recovered/Resolved]
  - Febrile neutropenia [Recovered/Resolved]
  - Diarrhoea [Recovered/Resolved]
